FAERS Safety Report 24884293 (Version 1)
Quarter: 2025Q1

REPORT INFORMATION
  Report Type: Spontaneous
  Country: FR (occurrence: FR)
  Receive Date: 20250124
  Receipt Date: 20250124
  Transmission Date: 20250409
  Serious: Yes (Other)
  Sender: ALEXION PHARMACEUTICALS
  Company Number: None

PATIENT
  Weight: 4.045 kg

DRUGS (2)
  1. QUETIAPINE FUMARATE [Suspect]
     Active Substance: QUETIAPINE FUMARATE
     Dosage: 50 MILLIGRAM, QD, GRADUALLY INCREASED TO 50 MG/DAY
  2. INSULIN NOS [Suspect]
     Active Substance: INSULIN NOS

REACTIONS (2)
  - Foetal macrosomia [Recovered/Resolved]
  - Foetal exposure during pregnancy [Recovered/Resolved]
